FAERS Safety Report 4466060-7 (Version None)
Quarter: 2004Q3

REPORT INFORMATION
  Report Type: 
  Country: None (occurrence: None)
  Receive Date: 20040930
  Receipt Date: 20040920
  Transmission Date: 20050211
  Serious: Yes (Hospitalization)
  Sender: FDA-Public Use
  Company Number: STA-AE-04-MTX-428

PATIENT
  Age: 42 Year
  Sex: Male

DRUGS (6)
  1. RHEUMATREX [Suspect]
     Indication: RHEUMATOID ARTHRITIS
     Dosage: 6 MG 1X PER 1 WK, ORAL
     Route: 048
     Dates: start: 20000221, end: 20000731
  2. RHEUMATREX [Suspect]
     Indication: RHEUMATOID ARTHRITIS
     Dosage: 8 MG 1X PER 1 WK, ORAL
     Route: 048
     Dates: start: 20000930
  3. PREDNISOLONE [Suspect]
     Indication: RHEUMATOID ARTHRITIS
     Dosage: ORAL
     Route: 048
     Dates: start: 20031212
  4. REMICADE [Suspect]
     Indication: RHEUMATOID ARTHRITIS
     Dosage: INTRAVENOUS
     Route: 042
     Dates: start: 20031212, end: 20031212
  5. REMICADE [Suspect]
     Indication: RHEUMATOID ARTHRITIS
     Dosage: INTRAVENOUS
     Route: 042
     Dates: start: 20031226, end: 20031226
  6. FOLIC ACID [Concomitant]

REACTIONS (5)
  - ABSCESS LIMB [None]
  - C-REACTIVE PROTEIN DECREASED [None]
  - HERPES ZOSTER [None]
  - OEDEMA PERIPHERAL [None]
  - PYREXIA [None]
